FAERS Safety Report 7331006-0 (Version None)
Quarter: 2011Q1

REPORT INFORMATION
  Report Type: 
  Country: None (occurrence: None)
  Receive Date: 20110225
  Receipt Date: 20110225
  Transmission Date: 20110831
  Serious: Yes (Other)
  Sender: FDA-Public Use
  Company Number: None

PATIENT
  Age: 25 Year
  Sex: Female

DRUGS (2)
  1. SERTRALINE HYDROCHLORIDE [Suspect]
     Indication: DEPRESSION
     Dosage: 25 MG QD PO
     Route: 048
     Dates: start: 20110210, end: 20110220
  2. SERTRALINE HYDROCHLORIDE [Suspect]
     Indication: ANXIETY
     Dosage: 25 MG QD PO
     Route: 048
     Dates: start: 20110210, end: 20110220

REACTIONS (6)
  - INSOMNIA [None]
  - MUSCLE SPASMS [None]
  - AKATHISIA [None]
  - MUSCLE DISORDER [None]
  - RESTLESSNESS [None]
  - NERVOUS SYSTEM DISORDER [None]
